FAERS Safety Report 10398835 (Version 1)
Quarter: 2014Q3

REPORT INFORMATION
  Report Type: Spontaneous
  Country: US (occurrence: None)
  Receive Date: 20140818
  Receipt Date: 20140818
  Transmission Date: 20150326
  Serious: Yes (Disabling)
  Sender: FDA-Public Use
  Company Number: None

PATIENT
  Age: 66 Year
  Sex: Female
  Weight: 60.33 kg

DRUGS (2)
  1. LEVAQUIN [Suspect]
     Active Substance: LEVOFLOXACIN
     Indication: DIVERTICULITIS
     Route: 048
  2. CIPRO [Suspect]
     Active Substance: CIPROFLOXACIN HYDROCHLORIDE
     Indication: DIVERTICULITIS
     Route: 048
     Dates: start: 20140214, end: 20140216

REACTIONS (12)
  - Vulvovaginal mycotic infection [None]
  - Fatigue [None]
  - Weight decreased [None]
  - Malaise [None]
  - Drug hypersensitivity [None]
  - Immune system disorder [None]
  - Pain [None]
  - Arthralgia [None]
  - Arthropathy [None]
  - Diverticulitis [None]
  - Oral fungal infection [None]
  - Abasia [None]

NARRATIVE: CASE EVENT DATE: 20140214
